FAERS Safety Report 25468273 (Version 1)
Quarter: 2025Q2

REPORT INFORMATION
  Report Type: Spontaneous
  Country: US (occurrence: None)
  Receive Date: 20250621
  Receipt Date: 20250621
  Transmission Date: 20250717
  Serious: Yes (Disabling, Other)
  Sender: FDA-CTU
  Company Number: None

PATIENT
  Age: 74 Year
  Sex: Female
  Weight: 59.4 kg

DRUGS (1)
  1. PRIMIDONE [Suspect]
     Active Substance: PRIMIDONE
     Indication: Tremor
     Dosage: 1 TABLET AT BEDTIME ORAL ?
     Route: 048

REACTIONS (18)
  - Feeling cold [None]
  - Somnolence [None]
  - Asthenia [None]
  - Fatigue [None]
  - Photosensitivity reaction [None]
  - Skin ulcer [None]
  - Burning sensation [None]
  - Pruritus [None]
  - Inflammation [None]
  - Neuropathy peripheral [None]
  - Alopecia [None]
  - Vision blurred [None]
  - Headache [None]
  - Varicose vein [None]
  - Abdominal pain lower [None]
  - Cognitive disorder [None]
  - Memory impairment [None]
  - Dermatosis [None]

NARRATIVE: CASE EVENT DATE: 20250615
